FAERS Safety Report 26061378 (Version 1)
Quarter: 2025Q4

REPORT INFORMATION
  Report Type: Spontaneous
  Country: EU (occurrence: EU)
  Receive Date: 20251118
  Receipt Date: 20251118
  Transmission Date: 20260118
  Serious: Yes (Other)
  Sender: NOVO NORDISK
  Company Number: EU-NOVOPROD-1561439

PATIENT
  Sex: Male

DRUGS (4)
  1. OZEMPIC [Suspect]
     Active Substance: SEMAGLUTIDE
     Indication: Diabetes mellitus
     Dosage: 1 MG
  2. PLAVIX [Concomitant]
     Active Substance: CLOPIDOGREL BISULFATE
     Indication: Cardiovascular disorder
     Dosage: UNK
  3. CELECTOL [Concomitant]
     Active Substance: CELIPROLOL HYDROCHLORIDE
     Dosage: UNK
  4. PROZAC [Concomitant]
     Active Substance: FLUOXETINE HYDROCHLORIDE
     Dosage: UNK

REACTIONS (3)
  - Pain [Unknown]
  - Herpes zoster [Unknown]
  - Pruritus [Unknown]
